FAERS Safety Report 7178808-1 (Version None)
Quarter: 2010Q4

REPORT INFORMATION
  Report Type: 
  Country: None (occurrence: None)
  Receive Date: 20101126
  Receipt Date: 20100930
  Transmission Date: 20110411
  Serious: No
  Sender: FDA-Public Use
  Company Number: 019759

PATIENT
  Sex: Female
  Weight: 91 kg

DRUGS (4)
  1. CIMZIA [Suspect]
     Indication: SJOGREN'S SYNDROME
     Dosage: (INDUCTION DOSE SUBCUTANEOUS)
     Route: 058
     Dates: start: 20100930, end: 20100930
  2. ZOLOFT [Concomitant]
  3. PREVACID [Concomitant]
  4. RESTASIS [Concomitant]

REACTIONS (1)
  - INJECTION SITE PAIN [None]
